FAERS Safety Report 19517665 (Version 1)
Quarter: 2021Q3

REPORT INFORMATION
  Report Type: Spontaneous
  Country: IN (occurrence: IN)
  Receive Date: 20210712
  Receipt Date: 20210712
  Transmission Date: 20211014
  Serious: Yes (Other)
  Sender: FDA-Public Use
  Company Number: NVSC2021IN124856

PATIENT
  Age: 72 Year
  Sex: Female

DRUGS (4)
  1. PAGENAX [Suspect]
     Active Substance: BROLUCIZUMAB
     Indication: CHOROIDAL NEOVASCULARISATION
     Dosage: UNK
     Route: 065
  2. PAGENAX [Suspect]
     Active Substance: BROLUCIZUMAB
     Dosage: UNK
     Route: 065
  3. PAGENAX [Suspect]
     Active Substance: BROLUCIZUMAB
     Dosage: UNK
     Route: 065
  4. PAGENAX [Suspect]
     Active Substance: BROLUCIZUMAB
     Indication: DETACHMENT OF RETINAL PIGMENT EPITHELIUM
     Dosage: UNK
     Route: 065

REACTIONS (4)
  - Detachment of retinal pigment epithelium [Unknown]
  - Condition aggravated [Unknown]
  - Retinal pigment epithelial tear [Unknown]
  - Product use in unapproved indication [Unknown]
